FAERS Safety Report 14738160 (Version 4)
Quarter: 2018Q2

REPORT INFORMATION
  Report Type: Spontaneous
  Country: CZ (occurrence: CZ)
  Receive Date: 20180409
  Receipt Date: 20180621
  Transmission Date: 20180711
  Serious: Yes (Hospitalization)
  Sender: FDA-Public Use
  Company Number: CZ-BAUSCH-BL-2018-009423

PATIENT
  Sex: Female

DRUGS (20)
  1. GENTAMICIN. [Suspect]
     Active Substance: GENTAMICIN
     Indication: MEDIASTINITIS
  2. ZINFORO [Suspect]
     Active Substance: CEFTAROLINE FOSAMIL
     Indication: PNEUMONIA
     Dosage: 600 (UNITS UNKNOWN)
     Route: 065
  3. GARAMYCIN [Suspect]
     Active Substance: GENTAMICIN SULFATE
     Indication: SKIN ULCER
  4. METRONIDAZOLE. [Suspect]
     Active Substance: METRONIDAZOLE
     Indication: ABSCESS
  5. METRONIDAZOLE. [Suspect]
     Active Substance: METRONIDAZOLE
     Indication: MEDIASTINITIS
  6. METRONIDAZOLE. [Suspect]
     Active Substance: METRONIDAZOLE
     Indication: SKIN ULCER
     Dosage: ALL THERAPY DETAILS UNKNOWN
     Route: 065
  7. GENTAMICIN. [Suspect]
     Active Substance: GENTAMICIN
     Indication: ABSCESS
     Dosage: AT AN UNKNOWN DOSE (FREQUENCY UNKNOWN)
     Route: 065
  8. GENTAMICIN. [Suspect]
     Active Substance: GENTAMICIN
     Indication: MEDIASTINITIS
  9. DIFLUCAN [Concomitant]
     Active Substance: FLUCONAZOLE
     Indication: FUNGAL INFECTION
  10. METRONIDAZOLE. [Suspect]
     Active Substance: METRONIDAZOLE
     Indication: PNEUMONIA
     Route: 065
  11. GENTAMICIN. [Suspect]
     Active Substance: GENTAMICIN
     Indication: SKIN ULCER
  12. GENTAMICIN. [Suspect]
     Active Substance: GENTAMICIN
     Indication: SKIN ULCER
  13. GENTAMICIN. [Suspect]
     Active Substance: GENTAMICIN
     Indication: PNEUMONIA
  14. ZINFORO [Suspect]
     Active Substance: CEFTAROLINE FOSAMIL
     Indication: ABSCESS
  15. ZINFORO [Suspect]
     Active Substance: CEFTAROLINE FOSAMIL
     Indication: MEDIASTINITIS
  16. GARAMYCIN [Suspect]
     Active Substance: GENTAMICIN SULFATE
     Indication: MEDIASTINITIS
     Route: 065
  17. GENTAMICIN. [Suspect]
     Active Substance: GENTAMICIN
     Indication: PNEUMONIA
  18. GENTAMICIN. [Suspect]
     Active Substance: GENTAMICIN
     Indication: ABSCESS
     Route: 065
  19. ZINFORO [Suspect]
     Active Substance: CEFTAROLINE FOSAMIL
     Indication: SKIN ULCER
     Dosage: AT AN UNKNOWN DOSE (FREQUENCY UNKNOWN)
     Route: 065
  20. ZINFORO [Suspect]
     Active Substance: CEFTAROLINE FOSAMIL
     Indication: SEPTIC SHOCK
     Route: 065

REACTIONS (2)
  - Drug ineffective [None]
  - Inflammatory marker increased [Recovered/Resolved]
